FAERS Safety Report 15343115 (Version 1)
Quarter: 2018Q3

REPORT INFORMATION
  Report Type: Spontaneous
  Country: JP (occurrence: JP)
  Receive Date: 20180903
  Receipt Date: 20180903
  Transmission Date: 20181010
  Serious: Yes (Hospitalization, Other)
  Sender: FDA-Public Use
  Company Number: JP-ROCHE-2172509

PATIENT
  Age: 65 Year
  Sex: Male
  Weight: 75 kg

DRUGS (2)
  1. XELODA [Suspect]
     Active Substance: CAPECITABINE
     Indication: RECTAL CANCER
     Dosage: DATE OF MOST RECENT DOSE OF CAPECITABINE: 10/AUG/2018
     Route: 048
     Dates: start: 20180807
  2. AMLODIPINE BESILATE [Concomitant]
     Active Substance: AMLODIPINE BESYLATE
     Dosage: DOSAGE IS UNCERTAIN.
     Route: 048

REACTIONS (2)
  - Jaundice [Recovered/Resolved]
  - Liver disorder [Recovering/Resolving]

NARRATIVE: CASE EVENT DATE: 20180813
